FAERS Safety Report 12411925 (Version 1)
Quarter: 2016Q2

REPORT INFORMATION
  Report Type: Spontaneous
  Country: CN (occurrence: CN)
  Receive Date: 20160527
  Receipt Date: 20160527
  Transmission Date: 20160815
  Serious: Yes (Other)
  Sender: FDA-Public Use
  Company Number: CN-PFIZER INC-2016270800

PATIENT
  Age: 80 Year
  Sex: Male

DRUGS (2)
  1. NORVASC [Suspect]
     Active Substance: AMLODIPINE BESYLATE
     Route: 048
  2. DIOVAN [Concomitant]
     Active Substance: VALSARTAN

REACTIONS (3)
  - Jaundice acholuric [Unknown]
  - Renal impairment [Unknown]
  - Anaemia [Unknown]
